FAERS Safety Report 22082195 (Version 2)
Quarter: 2023Q2

REPORT INFORMATION
  Report Type: Report from Study
  Country: US (occurrence: US)
  Receive Date: 20230310
  Receipt Date: 20230605
  Transmission Date: 20230721
  Serious: Yes (Hospitalization, Other)
  Sender: FDA-Public Use
  Company Number: US-TAKEDA-2023TUS022710

PATIENT
  Age: 6 Year
  Sex: Male

DRUGS (11)
  1. TEDUGLUTIDE [Suspect]
     Active Substance: TEDUGLUTIDE
     Indication: Short-bowel syndrome
     Dosage: 0.72 MILLIGRAM, QD
     Route: 042
     Dates: start: 20200131
  2. TEDUGLUTIDE [Suspect]
     Active Substance: TEDUGLUTIDE
     Indication: Short-bowel syndrome
     Dosage: 0.72 MILLIGRAM, QD
     Route: 042
     Dates: start: 20200131
  3. TEDUGLUTIDE [Suspect]
     Active Substance: TEDUGLUTIDE
     Indication: Short-bowel syndrome
     Dosage: 0.72 MILLIGRAM, QD
     Route: 042
     Dates: start: 20200131
  4. TEDUGLUTIDE [Suspect]
     Active Substance: TEDUGLUTIDE
     Indication: Short-bowel syndrome
     Dosage: 0.72 MILLIGRAM, QD
     Route: 042
     Dates: start: 20200131
  5. SULFASALAZINE [Concomitant]
     Active Substance: SULFASALAZINE
     Indication: Anastomotic ulcer
     Dosage: 5 MILLILITER, BID
     Route: 050
     Dates: start: 20210202, end: 20220826
  6. SULFASALAZINE [Concomitant]
     Active Substance: SULFASALAZINE
     Dosage: 10 MILLILITER, BID
     Route: 050
     Dates: start: 20220825
  7. SULFASALAZINE [Concomitant]
     Active Substance: SULFASALAZINE
     Dosage: 1000 MILLIGRAM
  8. FAMOTIDINE [Concomitant]
     Active Substance: FAMOTIDINE
     Indication: Gastrointestinal motility disorder
     Dosage: 20 MILLIGRAM, QD
     Route: 050
     Dates: start: 20220826
  9. METRONIDAZOLE [Concomitant]
     Active Substance: METRONIDAZOLE
     Indication: Overgrowth bacterial
     Dosage: 175 MILLIGRAM, TID
     Route: 050
     Dates: start: 20211119, end: 20220826
  10. ERYTHROMYCIN ETHYLSUCCINATE [Concomitant]
     Active Substance: ERYTHROMYCIN ETHYLSUCCINATE
     Indication: Gastrointestinal motility disorder
     Dosage: 5 MILLILITER, BID
  11. OMEPRAZOLE [Concomitant]
     Active Substance: OMEPRAZOLE
     Indication: Reflux gastritis
     Dosage: 4.5 MILLILITER, QD

REACTIONS (3)
  - Rhinovirus infection [Recovered/Resolved]
  - Small intestinal obstruction [Recovered/Resolved]
  - Abdominal distension [Recovered/Resolved]

NARRATIVE: CASE EVENT DATE: 20230211
